FAERS Safety Report 4461397-X (Version None)
Quarter: 2004Q3

REPORT INFORMATION
  Report Type: 
  Country: None (occurrence: None)
  Receive Date: 20040928
  Receipt Date: 20030801
  Transmission Date: 20050211
  Serious: Yes (Hospitalization, Other)
  Sender: FDA-Public Use
  Company Number: PHHO2003US09881

PATIENT
  Age: 21 Year
  Sex: Female
  Weight: 55 kg

DRUGS (1)
  1. TEGASEROD VS PLACEBO [Suspect]
     Indication: IRRITABLE BOWEL SYNDROME
     Dosage: 6 MG, BID
     Route: 048
     Dates: start: 20030702, end: 20030729

REACTIONS (5)
  - CAESAREAN SECTION [None]
  - CHORIOAMNIONITIS [None]
  - DRUG EXPOSURE DURING PREGNANCY [None]
  - NORMAL NEWBORN [None]
  - PYREXIA [None]
